FAERS Safety Report 5888185-1 (Version None)
Quarter: 2008Q3

REPORT INFORMATION
  Report Type: 
  Country: None (occurrence: None)
  Receive Date: 20080918
  Receipt Date: 20080901
  Transmission Date: 20090109
  Serious: Yes (Hospitalization, Other)
  Sender: FDA-Public Use
  Company Number: GB-AVENTIS-200715166EU

PATIENT
  Age: 30 Year
  Sex: Female
  Weight: 72 kg

DRUGS (9)
  1. GENTAMICIN [Suspect]
     Indication: DRUG USE FOR UNKNOWN INDICATION
     Dosage: DOSE: UNK
     Route: 042
  2. METRONIDAZOLE [Suspect]
     Indication: DRUG USE FOR UNKNOWN INDICATION
     Dosage: DOSE: UNK
     Route: 042
  3. ACETAMINOPHEN [Suspect]
     Dosage: DOSE: UNK
  4. CHLORPHENIRAMINE MALEATE [Suspect]
     Dosage: DOSE: UNK
     Route: 042
  5. MORPHINE [Suspect]
     Dosage: DOSE: UNK
     Route: 048
  6. COMPOUND SODIUM LACTATE [Concomitant]
     Indication: DRUG USE FOR UNKNOWN INDICATION
     Route: 042
  7. CYCLOSPORINE [Concomitant]
     Indication: PSORIASIS
     Dosage: DOSE: UNK
     Route: 048
  8. DEXAMETHASONE [Concomitant]
     Dosage: DOSE: UNK
  9. RINGER'S [Concomitant]
     Dosage: DOSE: UNK

REACTIONS (4)
  - DRUG EXPOSURE DURING PREGNANCY [None]
  - GENERALISED OEDEMA [None]
  - PSORIASIS [None]
  - PUSTULAR PSORIASIS [None]
